FAERS Safety Report 8544118-0 (Version None)
Quarter: 2012Q3

REPORT INFORMATION
  Report Type: 
  Country: None (occurrence: None)
  Receive Date: 20120727
  Receipt Date: 20120719
  Transmission Date: 20120928
  Serious: Yes (Hospitalization, Other)
  Sender: FDA-Public Use
  Company Number: DE-B.I. PHARMACEUTICALS,INC./RIDGEFIELD-2012-DE-01592DE

PATIENT
  Sex: Male
  Weight: 60 kg

DRUGS (2)
  1. VIRAMUNE [Suspect]
     Dosage: 40 ANZ
     Route: 048
  2. IBUPROFEN [Suspect]
     Dosage: 20 ANZ
     Route: 048

REACTIONS (10)
  - SUICIDE ATTEMPT [None]
  - PYREXIA [None]
  - HYPOTENSION [None]
  - INFECTION [None]
  - ABDOMINAL DISCOMFORT [None]
  - NAUSEA [None]
  - ANGINA PECTORIS [None]
  - RASH [None]
  - MALAISE [None]
  - BLOOD CREATININE INCREASED [None]
